FAERS Safety Report 7752582-X (Version None)
Quarter: 2011Q3

REPORT INFORMATION
  Report Type: 
  Country: None (occurrence: None)
  Receive Date: 20110915
  Receipt Date: 20110912
  Transmission Date: 20111222
  Serious: Yes (Other)
  Sender: FDA-Public Use
  Company Number: GB-TEVA-300013ISR

PATIENT

DRUGS (5)
  1. CERVARIX [Suspect]
     Dosage: 1INJ SINGLE DOSE
     Route: 058
     Dates: start: 20090119, end: 20090119
  2. SERETIDE [Suspect]
     Indication: PRODUCT USED FOR UNKNOWN INDICATION
     Route: 064
  3. NORGESTIMATE AND ETHINYL ESTRADIOL [Concomitant]
  4. CERVARIX [Suspect]
     Indication: PROPHYLAXIS
     Dosage: 1INJ SINGLE DOSE
     Route: 064
     Dates: start: 20090216, end: 20090216
  5. ALBUTEROL [Suspect]
     Indication: PRODUCT USED FOR UNKNOWN INDICATION
     Dosage: 2 PUFF AS REQUIRED
     Route: 064

REACTIONS (3)
  - SEIZURE ANOXIC [None]
  - MATERNAL EXPOSURE DURING PREGNANCY [None]
  - LIVE BIRTH [None]
